FAERS Safety Report 5861281-0 (Version None)
Quarter: 2008Q3

REPORT INFORMATION
  Report Type: 
  Country: None (occurrence: None)
  Receive Date: 20080827
  Receipt Date: 20080404
  Transmission Date: 20090109
  Serious: No
  Sender: FDA-Public Use
  Company Number: US-ABBOTT-08P-163-0445460-00

PATIENT
  Sex: Male
  Weight: 90.8 kg

DRUGS (4)
  1. COATED PDS [Suspect]
     Indication: BLOOD CHOLESTEROL ABNORMAL
     Route: 048
     Dates: start: 20080403
  2. ASA BABY [Concomitant]
     Indication: CARDIAC DISORDER
     Route: 048
  3. METOPROLOL SUCCINATE [Concomitant]
     Indication: CARDIAC DISORDER
     Route: 048
  4. IRBESARTAN [Concomitant]
     Indication: CARDIAC DISORDER
     Route: 048

REACTIONS (4)
  - CHILLS [None]
  - FLUSHING [None]
  - HEADACHE [None]
  - HYPERHIDROSIS [None]
